FAERS Safety Report 7224442-4 (Version None)
Quarter: 2011Q1

REPORT INFORMATION
  Report Type: 
  Country: None (occurrence: None)
  Receive Date: 20110113
  Receipt Date: 20110106
  Transmission Date: 20110831
  Serious: Yes (Other)
  Sender: FDA-Public Use
  Company Number: US-JNJFOC-20100804160

PATIENT
  Sex: Female

DRUGS (1)
  1. LEVAQUIN [Suspect]
     Indication: CYSTITIS
     Route: 048

REACTIONS (4)
  - TENDONITIS [None]
  - DEPRESSION [None]
  - PERONEAL NERVE PALSY [None]
  - TENOSYNOVITIS [None]
